FAERS Safety Report 9902666 (Version 3)
Quarter: 2014Q1

REPORT INFORMATION
  Report Type: Spontaneous
  Country: US (occurrence: US)
  Receive Date: 20140217
  Receipt Date: 20140327
  Transmission Date: 20141002
  Serious: Yes (Other)
  Sender: FDA-Public Use
  Company Number: US-PFIZER INC-2014039884

PATIENT
  Age: 72 Year
  Sex: Female
  Weight: 51.3 kg

DRUGS (3)
  1. PREMARIN [Suspect]
     Indication: VULVOVAGINAL DRYNESS
     Dosage: UNK
     Route: 067
  2. PREMARIN [Suspect]
     Dosage: 1 G, 1X/DAY
     Route: 067
  3. PREMARIN [Suspect]
     Dosage: 3 G, WEEKLY
     Route: 067

REACTIONS (2)
  - Sinusitis [Unknown]
  - Nasopharyngitis [Unknown]
